FAERS Safety Report 8922234 (Version 1)
Quarter: 2012Q4

REPORT INFORMATION
  Report Type: 
  Country: CO (occurrence: CO)
  Receive Date: 20121123
  Receipt Date: 20121123
  Transmission Date: 20130627
  Serious: Yes (Other)
  Sender: FDA-Public Use
  Company Number: CO-PFIZER INC-2012292412

PATIENT
  Age: 52 Year
  Sex: Female

DRUGS (1)
  1. PRISTIQ [Suspect]
     Dosage: 50 mg, UNK

REACTIONS (4)
  - Hip fracture [Not Recovered/Not Resolved]
  - Spinal column injury [Not Recovered/Not Resolved]
  - Ankle fracture [Not Recovered/Not Resolved]
  - Malaise [Unknown]
